FAERS Safety Report 5690767-7 (Version None)
Quarter: 2008Q2

REPORT INFORMATION
  Report Type: 
  Country: None (occurrence: None)
  Receive Date: 20080401
  Receipt Date: 20080324
  Transmission Date: 20081010
  Serious: Yes (Other)
  Sender: FDA-Public Use
  Company Number: A0703884A

PATIENT
  Sex: Female

DRUGS (2)
  1. LAMICTAL [Suspect]
     Route: 048
     Dates: start: 20071101
  2. IBUPROFEN [Concomitant]

REACTIONS (13)
  - BLOOD BILIRUBIN INCREASED [None]
  - DEHYDRATION [None]
  - DRY SKIN [None]
  - EATING DISORDER [None]
  - FATIGUE [None]
  - HEPATIC ENZYME INCREASED [None]
  - LYMPH NODE PAIN [None]
  - LYMPHADENOPATHY [None]
  - OCULAR ICTERUS [None]
  - PAIN OF SKIN [None]
  - RASH [None]
  - SKIN EXFOLIATION [None]
  - VOMITING [None]
